FAERS Safety Report 10501097 (Version 1)
Quarter: 2014Q4

REPORT INFORMATION
  Report Type: Spontaneous
  Country: US (occurrence: None)
  Receive Date: 20141006
  Receipt Date: 20141006
  Transmission Date: 20150528
  Serious: Yes (Other)
  Sender: FDA-Public Use
  Company Number: None

PATIENT
  Age: 28 Year
  Sex: Female
  Weight: 77.3 kg

DRUGS (1)
  1. LAMOTRIGINE 200 MG [Suspect]
     Active Substance: LAMOTRIGINE
     Indication: AFFECTIVE DISORDER
     Route: 048
     Dates: start: 20140813, end: 20140828

REACTIONS (9)
  - Self injurious behaviour [None]
  - Somnolence [None]
  - Irritability [None]
  - Therapeutic response changed [None]
  - Impaired work ability [None]
  - Suicidal ideation [None]
  - Product substitution issue [None]
  - Anxiety [None]
  - Mood altered [None]

NARRATIVE: CASE EVENT DATE: 20140815
